FAERS Safety Report 8436687-6 (Version None)
Quarter: 2012Q2

REPORT INFORMATION
  Report Type: 
  Country: None (occurrence: None)
  Receive Date: 20120614
  Receipt Date: 20120605
  Transmission Date: 20120825
  Serious: Yes (Hospitalization)
  Sender: FDA-Public Use
  Company Number: US-ASTRAZENECA-2012SE32503

PATIENT
  Age: 77 Year
  Sex: Female

DRUGS (7)
  1. FISH OIL [Concomitant]
  2. NEXIUM [Suspect]
     Indication: GASTROOESOPHAGEAL REFLUX DISEASE
     Route: 048
  3. LUNG MEDICINE [Concomitant]
     Indication: LUNG DISORDER
  4. HIGH BLOOD PRESSURE MEDICINE [Concomitant]
     Indication: HYPERTENSION
  5. VITAMIN TAB [Concomitant]
  6. HEART MEDICINE [Concomitant]
     Indication: CARDIAC DISORDER
  7. CHOLESTEROL MEDICINE [Concomitant]
     Indication: BLOOD CHOLESTEROL ABNORMAL

REACTIONS (2)
  - BRONCHIECTASIS [None]
  - PNEUMONIA [None]
